FAERS Safety Report 4913089-8 (Version None)
Quarter: 2006Q1

REPORT INFORMATION
  Report Type: 
  Country: None (occurrence: None)
  Receive Date: 20060210
  Receipt Date: 20060127
  Transmission Date: 20060701
  Serious: Yes (Death)
  Sender: FDA-Public Use
  Company Number: L05-USA-03935-08

PATIENT
  Age: 19 Year
  Sex: Male

DRUGS (8)
  1. CELEXA [Suspect]
  2. PHENOBARBITAL TAB [Suspect]
  3. SEROQUEL [Suspect]
  4. STRATTERA [Concomitant]
  5. CONCERTA [Concomitant]
  6. RISPERDAL [Concomitant]
  7. RITALIN [Concomitant]
  8. VALPROLIC ACID [Concomitant]

REACTIONS (13)
  - ANION GAP INCREASED [None]
  - BLOOD CALCIUM INCREASED [None]
  - BLOOD CHLORIDE DECREASED [None]
  - BLOOD CREATINE PHOSPHOKINASE MB INCREASED [None]
  - BLOOD SODIUM DECREASED [None]
  - CONVULSION [None]
  - ELECTROCARDIOGRAM QRS COMPLEX PROLONGED [None]
  - ELECTROCARDIOGRAM QRS COMPLEX SHORTENED [None]
  - HEART RATE INCREASED [None]
  - HYPOTENSION [None]
  - LOSS OF CONSCIOUSNESS [None]
  - OVERDOSE [None]
  - TROPONIN INCREASED [None]
